FAERS Safety Report 20994225 (Version 1)
Quarter: 2022Q2

REPORT INFORMATION
  Report Type: Spontaneous
  Country: GB (occurrence: GB)
  Receive Date: 20220622
  Receipt Date: 20220622
  Transmission Date: 20220720
  Serious: Yes (Other)
  Sender: FDA-Public Use
  Company Number: None

PATIENT
  Age: 38 Year
  Sex: Male
  Weight: 80 kg

DRUGS (14)
  1. TRAMADOL [Suspect]
     Active Substance: TRAMADOL
     Indication: Ill-defined disorder
     Dosage: UNK
     Dates: start: 20220614
  2. CLINDAMYCIN [Concomitant]
     Active Substance: CLINDAMYCIN
     Dosage: UNK USE AS DIRECTED
     Dates: start: 20201029
  3. COLCHICINE [Concomitant]
     Active Substance: COLCHICINE
     Dosage: 1 DOSAGE FORM, BID (TAKE ONE TWICE DAILY)
     Dates: start: 20220305
  4. DULOXETINE HYDROCHLORIDE [Concomitant]
     Active Substance: DULOXETINE HYDROCHLORIDE
     Dosage: 1 DF, AM (TAKE ONE TO BE TAKEN EACH MORNING)
     Dates: start: 20210316, end: 20220512
  5. DIAZEPAM [Concomitant]
     Active Substance: DIAZEPAM
     Dosage: UNK TAKE ONE OR TWO NIGHT
     Dates: start: 20220609
  6. DULOXETINE [Concomitant]
     Active Substance: DULOXETINE
     Dosage: 1 DOSAGE FORM, QD (TAKE ONE DAILY)
     Dates: start: 20210316
  7. ETORICOXIB [Concomitant]
     Active Substance: ETORICOXIB
     Dosage: 1 DOSAGE FORM, QD (TAKE ONE ONCE DAILY)
     Dates: start: 20210316
  8. FEBUXOSTAT [Concomitant]
     Active Substance: FEBUXOSTAT
     Dosage: 1 DOSAGE FORM, QD (TAKE ONE ONCE DAILY)
     Dates: start: 20210316
  9. NYSTATIN [Concomitant]
     Active Substance: NYSTATIN
     Dosage: 1 DF, QID (4 TIMES DAILY WORK 1ML AROUND THE MOUTH FOR 4-5 MINUTES AND THEN SWALLOW)
     Dates: start: 20220428, end: 20220505
  10. OMEPRAZOLE [Concomitant]
     Active Substance: OMEPRAZOLE
     Dosage: 2 DOSAGE FORM, QD (TAKE TWO DAILY)
     Dates: start: 20211007
  11. MORPHINE SULFATE [Concomitant]
     Active Substance: MORPHINE SULFATE
     Dosage: 5 MILLILITER, TID (5ML UP TO THREE TIMES A DAY AS REQUIRED)
     Dates: start: 20211109
  12. PREGABALIN [Concomitant]
     Active Substance: PREGABALIN
     Dosage: 2 DOSAGE FORM, BID (TAKE TWO TWICE DAILY)
     Dates: start: 20220305
  13. TRAMADOL [Concomitant]
     Active Substance: TRAMADOL
     Dosage: UNK TAKE 1 OR 2 EVERY 4-6 HRS
     Dates: start: 20220609
  14. MORPHINE SULFATE [Concomitant]
     Active Substance: MORPHINE SULFATE
     Dosage: 2 DOSAGE FORM, QD (TAKE UP TO TWO DAILY AS REQUIRED. TRY TO GRADUA)
     Dates: start: 20220305

REACTIONS (1)
  - Electric shock sensation [Recovered/Resolved]

NARRATIVE: CASE EVENT DATE: 20220614
